FAERS Safety Report 8129330-7 (Version None)
Quarter: 2012Q1

REPORT INFORMATION
  Report Type: 
  Country: None (occurrence: None)
  Receive Date: 20120210
  Receipt Date: 20120131
  Transmission Date: 20120608
  Serious: Yes (Other)
  Sender: FDA-Public Use
  Company Number: PHHY2012NO008191

PATIENT
  Sex: Female

DRUGS (3)
  1. ATENOLOL [Suspect]
     Dates: start: 19980101
  2. SOTALOL HYDROCHLORIDE [Suspect]
     Indication: ATRIAL FIBRILLATION
  3. SOTALOL HYDROCHLORIDE [Suspect]
     Indication: HYPERTENSION
     Dosage: 0.5 DF, BID (1/2 OF A TABLET MORNINGS AND 1/4 TABLET EVENININGS)
     Dates: start: 20020101, end: 20100222

REACTIONS (2)
  - QUALITY OF LIFE DECREASED [None]
  - DEAFNESS [None]
